FAERS Safety Report 8614333 (Version 5)
Quarter: 2012Q4

REPORT INFORMATION
  Report Type: 
  Country: US (occurrence: US)
  Receive Date: 20120530
  Receipt Date: 20120920
  Transmission Date: 20130627
  Serious: Yes (Hospitalization, Other)
  Sender: FDA-Public Use
  Company Number: US-009507513-2011SP046467

PATIENT

DRUGS (3)
  1. NUVARING [Suspect]
     Indication: CONTRACEPTION
     Dates: end: 20081023
  2. NUVARING [Suspect]
     Dates: start: 200710, end: 200809
  3. LIPITOR [Concomitant]
     Indication: HYPERCHOLESTEROLAEMIA
     Dates: start: 2004, end: 20081205

REACTIONS (18)
  - Abortion spontaneous [Recovered/Resolved]
  - Superior sagittal sinus thrombosis [Recovered/Resolved]
  - Pulmonary embolism [Recovered/Resolved]
  - Deep vein thrombosis [Recovered/Resolved]
  - Cavernous sinus thrombosis [Unknown]
  - Hypercoagulation [Unknown]
  - Mental disorder [Unknown]
  - Antiphospholipid antibodies [Unknown]
  - Central nervous system lesion [Unknown]
  - Pulmonary mass [Unknown]
  - Unintended pregnancy [Recovered/Resolved]
  - Status migrainosus [Not Recovered/Not Resolved]
  - Cholelithiasis [Unknown]
  - Depression [Unknown]
  - Cognitive disorder [Recovering/Resolving]
  - Adverse drug reaction [Recovering/Resolving]
  - Anxiety [Unknown]
  - Thrombophlebitis superficial [Unknown]
